FAERS Safety Report 4741568-5 (Version None)
Quarter: 2005Q3

REPORT INFORMATION
  Report Type: 
  Country: None (occurrence: None)
  Receive Date: 20050808
  Receipt Date: 20050725
  Transmission Date: 20060218
  Serious: Yes (Other)
  Sender: FDA-Public Use
  Company Number: DE_050716523

PATIENT
  Age: 33 Year
  Sex: Female

DRUGS (4)
  1. CYMBALTA [Suspect]
     Indication: DEPRESSION
     Dosage: 60 MG DAY
     Dates: start: 20050301, end: 20050722
  2. SEROQUEL [Concomitant]
  3. LIMOVAN (ZOPICLONE) [Concomitant]
  4. ACETYLSALICYLIC ACID SRT [Concomitant]

REACTIONS (4)
  - ASTHENIA [None]
  - DIARRHOEA HAEMORRHAGIC [None]
  - HAEMATOMA [None]
  - PRURITUS [None]
